FAERS Safety Report 8183835-1 (Version None)
Quarter: 2012Q1

REPORT INFORMATION
  Report Type: 
  Country: None (occurrence: None)
  Receive Date: 20120305
  Receipt Date: 20120227
  Transmission Date: 20120608
  Serious: Yes (Other)
  Sender: FDA-Public Use
  Company Number: JP-PFIZER INC-2012048038

PATIENT
  Age: 74 Year
  Sex: Female

DRUGS (2)
  1. CELECOXIB [Suspect]
     Indication: OSTEOARTHRITIS
     Dosage: 100 MG, 2X/DAY
     Route: 048
     Dates: start: 20100710, end: 20100712
  2. LIMAPROST [Concomitant]
     Dosage: UNK
     Route: 048
     Dates: start: 20100430, end: 20100712

REACTIONS (1)
  - PYELONEPHRITIS [None]
